FAERS Safety Report 13585495 (Version 2)
Quarter: 2017Q3

REPORT INFORMATION
  Report Type: Spontaneous
  Country: US (occurrence: US)
  Receive Date: 20170526
  Receipt Date: 20170724
  Transmission Date: 20171127
  Serious: Yes (Other)
  Sender: FDA-Public Use
  Company Number: US-PFIZER INC-2017227336

PATIENT
  Sex: Female

DRUGS (9)
  1. VENLAFAXINE HCL [Suspect]
     Active Substance: VENLAFAXINE HYDROCHLORIDE
     Indication: DEPRESSION
     Dosage: 75 MG, 1X/DAY (IN THE MORNING)
     Route: 048
  2. SERTRALINE HCL [Suspect]
     Active Substance: SERTRALINE HYDROCHLORIDE
     Indication: DEPRESSION
  3. EFFEXOR XR [Suspect]
     Active Substance: VENLAFAXINE HYDROCHLORIDE
     Indication: DEPRESSION
     Dosage: 37.5 MG, UNK
     Route: 048
  4. EFFEXOR XR [Suspect]
     Active Substance: VENLAFAXINE HYDROCHLORIDE
     Indication: FIBROMYALGIA
     Dosage: 75 MG, 1X/DAY (IN THE MORNING)
     Route: 048
  5. ALPRAZOLAM. [Concomitant]
     Active Substance: ALPRAZOLAM
     Indication: ANXIETY
     Dosage: 2 MG, DAILY (0.5 MG, IN THE MORNING, 0.5 MG IN AFTERNOON, 1 MG AT BEDTIME)
     Route: 048
  6. VENLAFAXINE HCL [Suspect]
     Active Substance: VENLAFAXINE HYDROCHLORIDE
     Indication: FIBROMYALGIA
  7. SERTRALINE HCL [Suspect]
     Active Substance: SERTRALINE HYDROCHLORIDE
     Indication: ANXIETY
     Dosage: 50 MG, 1X/DAY (IN THE MORNING)
     Route: 048
  8. ZOLOFT [Suspect]
     Active Substance: SERTRALINE HYDROCHLORIDE
     Indication: DEPRESSION
  9. ZOLOFT [Suspect]
     Active Substance: SERTRALINE HYDROCHLORIDE
     Indication: ANXIETY
     Dosage: 50 MG, 1X/DAY (IN THE MORNING)
     Route: 048
     Dates: start: 2002

REACTIONS (8)
  - Anger [Recovered/Resolved]
  - Drug ineffective [Unknown]
  - Anxiety [Recovered/Resolved]
  - Crying [Recovered/Resolved]
  - Drug intolerance [Unknown]
  - Drug dependence [Unknown]
  - Fear [Recovered/Resolved]
  - Feeling abnormal [Unknown]
